FAERS Safety Report 8083373-0 (Version None)
Quarter: 2012Q1

REPORT INFORMATION
  Report Type: 
  Country: None (occurrence: None)
  Receive Date: 20120127
  Receipt Date: 20110117
  Transmission Date: 20120608
  Serious: Yes (Hospitalization)
  Sender: FDA-Public Use
  Company Number: US-ABBOTT-11P-163-0697909-00

PATIENT
  Sex: Female
  Weight: 53.118 kg

DRUGS (5)
  1. HUMIRA [Suspect]
     Indication: CROHN'S DISEASE
  2. REMICADE [Suspect]
     Route: 042
     Dates: start: 20071015, end: 20100201
  3. ANTIDEPRESSANTS [Concomitant]
     Indication: CROHN'S DISEASE
  4. REMICADE [Suspect]
     Indication: CROHN'S DISEASE
     Route: 042
     Dates: start: 20020625, end: 20070827
  5. MESALAMINE [Concomitant]
     Indication: PRODUCT USED FOR UNKNOWN INDICATION

REACTIONS (2)
  - PERICARDITIS [None]
  - STAPHYLOCOCCAL ABSCESS [None]
